FAERS Safety Report 24264205 (Version 1)
Quarter: 2024Q3

REPORT INFORMATION
  Report Type: Spontaneous
  Country: US (occurrence: US)
  Receive Date: 20240829
  Receipt Date: 20240829
  Transmission Date: 20241016
  Serious: Yes (Death, Other)
  Sender: AMGEN
  Company Number: US-AMGEN-USASP2024168662

PATIENT

DRUGS (1)
  1. PREDNISONE [Suspect]
     Active Substance: PREDNISONE
     Indication: Immunosuppression
     Dosage: UNK
     Route: 065

REACTIONS (8)
  - Cardiovascular disorder [Fatal]
  - Death [Fatal]
  - COVID-19 [Fatal]
  - Urosepsis [Fatal]
  - Neoplasm malignant [Fatal]
  - Kidney transplant rejection [Unknown]
  - Chronic allograft nephropathy [Unknown]
  - Graft loss [Unknown]
